FAERS Safety Report 13650810 (Version 1)
Quarter: 2017Q2

REPORT INFORMATION
  Report Type: Spontaneous
  Country: US (occurrence: US)
  Receive Date: 20170614
  Receipt Date: 20170614
  Transmission Date: 20170830
  Serious: No
  Sender: FDA-Public Use
  Company Number: None

PATIENT
  Age: 53 Year
  Sex: Female
  Weight: 74.91 kg

DRUGS (2)
  1. TOPAMAX [Suspect]
     Active Substance: TOPIRAMATE
     Indication: MIGRAINE
     Dosage: ?          QUANTITY:4.?LED V?9%??.QUAJ;?
     Route: 048
     Dates: start: 201510, end: 201601
  2. VITAMIN D [Concomitant]
     Active Substance: CHOLECALCIFEROL

REACTIONS (11)
  - Dry mouth [None]
  - Weight increased [None]
  - Oropharyngeal pain [None]
  - Vision blurred [None]
  - Balance disorder [None]
  - Nervousness [None]
  - Asthenia [None]
  - Hypoaesthesia [None]
  - Paraesthesia [None]
  - Headache [None]
  - Fatigue [None]

NARRATIVE: CASE EVENT DATE: 201504
